FAERS Safety Report 8482118-X (Version None)
Quarter: 2012Q3

REPORT INFORMATION
  Report Type: 
  Country: None (occurrence: None)
  Receive Date: 20120702
  Receipt Date: 20120620
  Transmission Date: 20120928
  Serious: Yes (Hospitalization)
  Sender: FDA-Public Use
  Company Number: JP-VERTEX PHARMACEUTICALS INC.-AE-2012-008843

PATIENT
  Age: 66 Year
  Sex: Male

DRUGS (8)
  1. PEG-INTRON [Concomitant]
     Indication: HEPATITIS C
     Route: 058
     Dates: start: 20120517, end: 20120519
  2. FLAVOXATE HYDROCHLORIDE [Concomitant]
     Route: 048
  3. CANDESARTAN CILEXETIL [Concomitant]
     Route: 048
  4. REBETOL [Concomitant]
     Indication: HEPATITIS C
     Route: 048
     Dates: start: 20120517, end: 20120519
  5. TELAVIC (TELAPREVIR) [Suspect]
     Indication: HEPATITIS C
     Route: 048
     Dates: start: 20120517, end: 20120519
  6. ADALAT CC [Concomitant]
     Route: 048
  7. FAMOTIDINE [Concomitant]
     Route: 048
  8. URIEF [Concomitant]
     Route: 048

REACTIONS (1)
  - RENAL FAILURE ACUTE [None]
